FAERS Safety Report 10034561 (Version 1)
Quarter: 2014Q1

REPORT INFORMATION
  Report Type: Spontaneous
  Country: US (occurrence: US)
  Receive Date: 20140325
  Receipt Date: 20140325
  Transmission Date: 20141002
  Serious: Yes (Other)
  Sender: FDA-Public Use
  Company Number: US-ASTRAZENECA-2014SE18606

PATIENT
  Age: 73 Year
  Sex: Female
  Weight: 62.1 kg

DRUGS (7)
  1. SYMBICORT [Suspect]
     Indication: DYSPNOEA
     Dosage: 80/4.5 MCG, 2 PUFFS BID
     Route: 055
     Dates: start: 20140312, end: 20140314
  2. SYMBICORT [Suspect]
     Indication: PNEUMONITIS
     Dosage: 80/4.5 MCG, 2 PUFFS BID
     Route: 055
     Dates: start: 20140312, end: 20140314
  3. SIMVASTATIN (GENERIC FOR ZOCOR) [Concomitant]
     Indication: BLOOD CHOLESTEROL ABNORMAL
     Route: 048
  4. ENALAPRIL (GENERIC FOR VASOTEC) [Concomitant]
     Indication: BLOOD PRESSURE
     Route: 048
  5. PROCARDIA XL [Concomitant]
     Indication: BLOOD PRESSURE
     Route: 048
  6. POTASSIUM CHLORIDE [Concomitant]
     Indication: BLOOD POTASSIUM DECREASED
     Route: 048
  7. ALBUTEROL INHALER [Concomitant]
     Indication: RESPIRATORY THERAPY
     Route: 055

REACTIONS (4)
  - Eye pain [Unknown]
  - Vision blurred [Unknown]
  - Muscle spasms [Recovered/Resolved]
  - Off label use [Unknown]
